FAERS Safety Report 15556139 (Version 4)
Quarter: 2018Q4

REPORT INFORMATION
  Report Type: Spontaneous
  Country: US (occurrence: US)
  Receive Date: 20181026
  Receipt Date: 20181108
  Transmission Date: 20190205
  Serious: Yes (Other)
  Sender: FDA-Public Use
  Company Number: US-CELGENEUS-USA-20181007123

PATIENT
  Age: 62 Year
  Sex: Female

DRUGS (11)
  1. REVLIMID [Suspect]
     Active Substance: LENALIDOMIDE
     Dosage: 10 MILLIGRAM
     Route: 048
     Dates: start: 201605
  2. VELCADE [Suspect]
     Active Substance: BORTEZOMIB
     Indication: PRODUCT USED FOR UNKNOWN INDICATION
     Route: 065
     Dates: start: 201412
  3. RANITIDINE. [Concomitant]
     Active Substance: RANITIDINE
     Indication: PRODUCT USED FOR UNKNOWN INDICATION
     Dosage: 150 MILLIGRAM
     Route: 048
     Dates: start: 20180730
  4. REVLIMID [Suspect]
     Active Substance: LENALIDOMIDE
     Dosage: 5 MILLIGRAM
     Route: 048
     Dates: start: 201704
  5. SODIUM FLUORIDE. [Concomitant]
     Active Substance: SODIUM FLUORIDE
     Indication: PRODUCT USED FOR UNKNOWN INDICATION
     Route: 065
     Dates: start: 20180618
  6. MIDODRINE [Concomitant]
     Active Substance: MIDODRINE
     Indication: PRODUCT USED FOR UNKNOWN INDICATION
     Dosage: 15 MILLIGRAM
     Route: 048
     Dates: start: 20181026
  7. ZOLEDRONIC ACID [Concomitant]
     Active Substance: ZOLEDRONIC ACID
     Indication: PRODUCT USED FOR UNKNOWN INDICATION
     Dosage: 4 MILLIGRAM
     Route: 041
     Dates: start: 20180625
  8. REVLIMID [Suspect]
     Active Substance: LENALIDOMIDE
     Dosage: 5 - 10 MILLIGRAM
     Route: 048
     Dates: start: 201602
  9. REVLIMID [Suspect]
     Active Substance: LENALIDOMIDE
     Indication: PLASMA CELL MYELOMA
     Dosage: 25 MILLIGRAM
     Route: 048
     Dates: start: 201501, end: 2015
  10. REVLIMID [Suspect]
     Active Substance: LENALIDOMIDE
     Dosage: 1 CAP (5MG) ALTERNATING WITH 2 CAPS (10MG) EACH DAY.
     Route: 048
     Dates: start: 20180614
  11. DICLOFENAC [Concomitant]
     Active Substance: DICLOFENAC
     Indication: PRODUCT USED FOR UNKNOWN INDICATION
     Dosage: 8 GRAM
     Route: 061
     Dates: start: 20181016

REACTIONS (4)
  - Muscle rupture [Recovering/Resolving]
  - Fall [Recovered/Resolved]
  - Foot fracture [Recovering/Resolving]
  - Neuropathy peripheral [Unknown]

NARRATIVE: CASE EVENT DATE: 201808
